FAERS Safety Report 5466912-5 (Version None)
Quarter: 2007Q3

REPORT INFORMATION
  Report Type: 
  Country: None (occurrence: None)
  Receive Date: 20070920
  Receipt Date: 20070905
  Transmission Date: 20080115
  Serious: Yes (Death)
  Sender: FDA-Public Use
  Company Number: 2007EU001980

PATIENT
  Age: 45 Year
  Sex: Male

DRUGS (4)
  1. TACROLIMUS [Suspect]
     Indication: LIVER TRANSPLANT
  2. PROLEUKIN [Suspect]
     Indication: LIVER TRANSPLANT
  3. MYCOPHENOLATE MOFETIL [Suspect]
     Indication: LIVER TRANSPLANT
  4. CORTICOSTEROIDS() [Suspect]
     Indication: LIVER TRANSPLANT

REACTIONS (11)
  - CHOLESTASIS [None]
  - DECUBITUS ULCER [None]
  - DRUG INEFFECTIVE [None]
  - ENDOCARDITIS [None]
  - GRAFT DYSFUNCTION [None]
  - KLEBSIELLA INFECTION [None]
  - LIVER TRANSPLANT REJECTION [None]
  - MULTI-ORGAN FAILURE [None]
  - PNEUMONIA BACTERIAL [None]
  - SEPSIS [None]
  - STAPHYLOCOCCAL INFECTION [None]
